FAERS Safety Report 16912594 (Version 1)
Quarter: 2019Q4

REPORT INFORMATION
  Report Type: Spontaneous
  Country: US (occurrence: US)
  Receive Date: 20191014
  Receipt Date: 20191014
  Transmission Date: 20200122
  Serious: Yes (Hospitalization, Other)
  Sender: FDA-Public Use
  Company Number: US-GLAXOSMITHKLINE-US2019182872

PATIENT
  Age: 61 Year
  Sex: Female

DRUGS (1)
  1. VENTOLIN HFA [Suspect]
     Active Substance: ALBUTEROL SULFATE
     Indication: PRODUCT USED FOR UNKNOWN INDICATION
     Dosage: UNK

REACTIONS (10)
  - Respiratory failure [Unknown]
  - Renal disorder [Recovered/Resolved]
  - Debridement [Unknown]
  - Peripheral swelling [Unknown]
  - Fatigue [Not Recovered/Not Resolved]
  - Wound [Unknown]
  - Asthenia [Not Recovered/Not Resolved]
  - Limb injury [Unknown]
  - Endotracheal intubation [Unknown]
  - Sedation [Unknown]

NARRATIVE: CASE EVENT DATE: 2019
